FAERS Safety Report 10504024 (Version 1)
Quarter: 2014Q4

REPORT INFORMATION
  Report Type: Spontaneous
  Country: US (occurrence: US)
  Receive Date: 20141008
  Receipt Date: 20141008
  Transmission Date: 20150528
  Serious: No
  Sender: FDA-Public Use
  Company Number: US-BEH-2013037098

PATIENT
  Sex: Male
  Weight: 99 kg

DRUGS (22)
  1. MULTIVITAMIN [Concomitant]
     Active Substance: VITAMINS
  2. HUMALOG [Concomitant]
     Active Substance: INSULIN LISPRO
  3. DIPHENHYDRAMINE [Concomitant]
     Active Substance: DIPHENHYDRAMINE
  4. GABAPENTIN. [Concomitant]
     Active Substance: GABAPENTIN
  5. LOVAZA [Concomitant]
     Active Substance: OMEGA-3-ACID ETHYL ESTERS
  6. EPIPEN [Concomitant]
     Active Substance: EPINEPHRINE
  7. ALL OTHER THERAPEUTIC PRODUCTS [Concomitant]
     Active Substance: UNSPECIFIED INGREDIENT
  8. PRIVIGEN [Suspect]
     Active Substance: HUMAN IMMUNOGLOBULIN G
     Indication: POLYNEUROPATHY
     Dosage: AS DIRECTED
     Route: 042
  9. HEPARIN [Concomitant]
     Active Substance: HEPARIN SODIUM
  10. LOSARTAN [Concomitant]
     Active Substance: LOSARTAN
  11. NOVOLOG [Concomitant]
     Active Substance: INSULIN ASPART
  12. SODIUM CHLORIDE. [Concomitant]
     Active Substance: SODIUM CHLORIDE
  13. TRIAMTERENE HCTZ [Concomitant]
     Active Substance: HYDROCHLOROTHIAZIDE\TRIAMTERENE
  14. LIDOCAINE. [Concomitant]
     Active Substance: LIDOCAINE
  15. METFORMIN [Concomitant]
     Active Substance: METFORMIN HYDROCHLORIDE
  16. ASPIRIN. [Concomitant]
     Active Substance: ASPIRIN
  17. LANTUS [Concomitant]
     Active Substance: INSULIN GLARGINE
  18. ACETAMINOPHEN. [Concomitant]
     Active Substance: ACETAMINOPHEN
  19. METOPROLOL [Concomitant]
     Active Substance: METOPROLOL
  20. MINOXIDIL. [Concomitant]
     Active Substance: MINOXIDIL
  21. DIGOXIN. [Concomitant]
     Active Substance: DIGOXIN
  22. SIMVASTATIN. [Concomitant]
     Active Substance: SIMVASTATIN

REACTIONS (1)
  - Hypoaesthesia [Unknown]
